FAERS Safety Report 12807936 (Version 3)
Quarter: 2016Q4

REPORT INFORMATION
  Report Type: Spontaneous
  Country: BR (occurrence: BR)
  Receive Date: 20161004
  Receipt Date: 20161203
  Transmission Date: 20170207
  Serious: Yes (Hospitalization)
  Sender: FDA-Public Use
  Company Number: PHHY2016BR129403

PATIENT
  Age: 92 Year
  Sex: Female
  Weight: 43 kg

DRUGS (4)
  1. EXELON PATCH [Suspect]
     Active Substance: RIVASTIGMINE
     Indication: DEMENTIA ALZHEIMER^S TYPE
     Dosage: 4.6 MG, QD (9 MG DAILY RIVASTIGMINE BASE, PATCH 5 CM2)
     Route: 062
  2. QUETIAPINA [Concomitant]
     Active Substance: QUETIAPINE
     Indication: AGITATION
     Dosage: 1 DF, PRN
     Route: 048
  3. MEMANTINA [Concomitant]
     Active Substance: MEMANTINE HYDROCHLORIDE
     Indication: DEMENTIA ALZHEIMER^S TYPE
     Dosage: 2 DF, QD
     Route: 048
  4. EXELON PATCH [Suspect]
     Active Substance: RIVASTIGMINE
     Dosage: 9.5 MG, QD PATCH 10 (CM2) (18 MG DAILY RIVASTIGMINE BASE)
     Route: 062

REACTIONS (6)
  - Fall [Recovered/Resolved]
  - Somnolence [Recovered/Resolved]
  - Incorrect drug administration duration [Recovered/Resolved]
  - Product adhesion issue [Unknown]
  - Femur fracture [Recovered/Resolved]
  - Gait disturbance [Recovering/Resolving]

NARRATIVE: CASE EVENT DATE: 20160628
